FAERS Safety Report 17043384 (Version 4)
Quarter: 2020Q1

REPORT INFORMATION
  Report Type: Spontaneous
  Country: PL (occurrence: PL)
  Receive Date: 20191118
  Receipt Date: 20200221
  Transmission Date: 20200409
  Serious: Yes (Life-Threatening, Hospitalization, Other)
  Sender: FDA-Public Use
  Company Number: PL-SA-2019SA318730

PATIENT
  Age: 32 Year
  Sex: Male

DRUGS (2)
  1. LEMTRADA [Suspect]
     Active Substance: ALEMTUZUMAB
     Dosage: UNK
     Route: 041
     Dates: start: 201809, end: 201809
  2. LEMTRADA [Suspect]
     Active Substance: ALEMTUZUMAB
     Indication: MULTIPLE SCLEROSIS
     Dosage: 12 MG, QD
     Route: 041
     Dates: start: 20190916, end: 20190918

REACTIONS (24)
  - Myocardial infarction [Recovered/Resolved with Sequelae]
  - Sepsis [Not Recovered/Not Resolved]
  - Haemoglobin decreased [Unknown]
  - Blood alkaline phosphatase increased [Not Recovered/Not Resolved]
  - Bone abscess [Not Recovered/Not Resolved]
  - Thrombocytopenia [Not Recovered/Not Resolved]
  - Cardiopulmonary failure [Not Recovered/Not Resolved]
  - Platelet count decreased [Not Recovered/Not Resolved]
  - Staphylococcus test positive [Unknown]
  - AST/ALT ratio abnormal [Not Recovered/Not Resolved]
  - Anaemia [Not Recovered/Not Resolved]
  - Intervertebral discitis [Not Recovered/Not Resolved]
  - Blood bilirubin abnormal [Unknown]
  - Eosinophil count abnormal [Unknown]
  - Blood urea abnormal [Unknown]
  - Hepatic failure [Not Recovered/Not Resolved]
  - Dyspnoea [Unknown]
  - Pyrexia [Unknown]
  - Leukopenia [Not Recovered/Not Resolved]
  - Hepatomegaly [Unknown]
  - Ischaemic stroke [Recovered/Resolved]
  - General physical health deterioration [Unknown]
  - Splenomegaly [Unknown]
  - Tuberculosis [Unknown]

NARRATIVE: CASE EVENT DATE: 2019
